FAERS Safety Report 10968267 (Version 3)
Quarter: 2015Q1

REPORT INFORMATION
  Report Type: Report from Study
  Country: IT (occurrence: IT)
  Receive Date: 20150330
  Receipt Date: 20150331
  Transmission Date: 20150721
  Serious: Yes (Hospitalization)
  Sender: FDA-Public Use
  Company Number: IT-EISAI MEDICAL RESEARCH-EC-2015-003038

PATIENT
  Age: 67 Year
  Sex: Female
  Weight: 78 kg

DRUGS (17)
  1. OLPRESS [Concomitant]
     Active Substance: OLMESARTAN MEDOXOMIL
  2. SOLDESAM [Concomitant]
     Active Substance: DEXAMETHASONE
  3. NOVONORM [Concomitant]
     Active Substance: REPAGLINIDE
  4. NOVONORM [Concomitant]
     Active Substance: REPAGLINIDE
  5. TARGIN [Concomitant]
     Active Substance: NALOXONE HYDROCHLORIDE\OXYCODONE HYDROCHLORIDE
  6. CLEXANE [Concomitant]
     Active Substance: ENOXAPARIN SODIUM
  7. OLPREZIDE [Concomitant]
     Active Substance: HYDROCHLOROTHIAZIDE\OLMESARTAN MEDOXOMIL
  8. TOLEP [Concomitant]
     Active Substance: OXCARBAZEPINE
  9. LENVATINIB [Suspect]
     Active Substance: LENVATINIB
     Route: 048
     Dates: start: 20150110, end: 20150227
  10. LENVATINIB [Suspect]
     Active Substance: LENVATINIB
     Indication: THYROID CANCER
     Route: 048
     Dates: start: 20141230, end: 20150103
  11. GASTROLOC [Concomitant]
  12. LENVATINIB [Suspect]
     Active Substance: LENVATINIB
     Route: 048
     Dates: start: 20150304
  13. EUTINO [Concomitant]
  14. LYRICA [Concomitant]
     Active Substance: PREGABALIN
  15. TAPAZOLE [Concomitant]
     Active Substance: METHIMAZOLE
  16. ADALAT [Concomitant]
     Active Substance: NIFEDIPINE
  17. EZETROL [Concomitant]
     Active Substance: EZETIMIBE

REACTIONS (2)
  - Stomatitis [Recovering/Resolving]
  - Epilepsy [Recovered/Resolved]

NARRATIVE: CASE EVENT DATE: 20150103
